FAERS Safety Report 6547431-1 (Version None)
Quarter: 2010Q1

REPORT INFORMATION
  Report Type: 
  Country: None (occurrence: None)
  Receive Date: 20100122
  Receipt Date: 20100120
  Transmission Date: 20100710
  Serious: Yes (Death, Other)
  Sender: FDA-Public Use
  Company Number: PHHY2009DE53873

PATIENT
  Sex: Male

DRUGS (3)
  1. EXELON [Suspect]
     Indication: DEMENTIA
     Dosage: 9.5 MG/24 HRS
     Route: 062
     Dates: start: 20090301
  2. EXELON [Suspect]
     Dosage: 4.6 MG/24 HRS
     Route: 062
  3. EXELON [Suspect]
     Dosage: 2.3 MG/24 HRS
     Route: 062

REACTIONS (3)
  - DEPRESSION [None]
  - PARKINSONIAN GAIT [None]
  - SUDDEN CARDIAC DEATH [None]
